FAERS Safety Report 9418976 (Version 2)
Quarter: 2013Q3

REPORT INFORMATION
  Report Type: Report from Study
  Country: DE (occurrence: DE)
  Receive Date: 20130725
  Receipt Date: 20130819
  Transmission Date: 20140515
  Serious: Yes (Other)
  Sender: FDA-Public Use
  Company Number: PHHY2013DE076789

PATIENT
  Sex: Female

DRUGS (7)
  1. FTY 720 [Suspect]
     Indication: MULTIPLE SCLEROSIS
     Dosage: 0.5 MG, QD
     Route: 048
     Dates: start: 20121212, end: 201302
  2. FTY 720 [Suspect]
     Dosage: 0.5 MG, QD
     Route: 048
     Dates: start: 20130213, end: 20130716
  3. BACLOFEN [Concomitant]
     Indication: MYALGIA
     Dosage: 10 MG, QD
     Route: 048
     Dates: start: 201004
  4. TRANCOLONG [Concomitant]
     Indication: NEURALGIA
     Dosage: 400 MG, QD
     Route: 048
     Dates: start: 201004
  5. CYMBALTA [Concomitant]
     Indication: NEURALGIA
     Dosage: 30 MG, TID
     Route: 048
     Dates: start: 200906
  6. TRIMIPRAMINE [Concomitant]
     Dosage: 150 MG, QD
     Route: 048
     Dates: start: 2007
  7. YASMIN [Concomitant]
     Dosage: 1 UNK, QD

REACTIONS (2)
  - Pancreatitis [Recovered/Resolved]
  - Multiple sclerosis relapse [Unknown]
